FAERS Safety Report 9853609 (Version 2)
Quarter: 2014Q2

REPORT INFORMATION
  Report Type: Spontaneous
  Country: US (occurrence: US)
  Receive Date: 20140129
  Receipt Date: 20140424
  Transmission Date: 20141212
  Serious: No
  Sender: FDA-Public Use
  Company Number: US-009507513-1401USA011892

PATIENT
  Sex: Female

DRUGS (2)
  1. DULERA [Suspect]
     Dosage: 2 PUFFS IN THE MORNING AND EVENING
     Route: 048
     Dates: start: 201211
  2. DULERA [Suspect]
     Dosage: UNK
     Route: 055

REACTIONS (5)
  - Drug dose omission [Unknown]
  - Product quality issue [Unknown]
  - Product quality issue [Unknown]
  - Drug dose omission [Unknown]
  - No adverse event [Unknown]
